FAERS Safety Report 23934948 (Version 1)
Quarter: 2024Q2

REPORT INFORMATION
  Report Type: Report from Study
  Country: MX (occurrence: MX)
  Receive Date: 20240604
  Receipt Date: 20240604
  Transmission Date: 20240716
  Serious: Yes (Hospitalization, Other)
  Sender: FDA-Public Use
  Company Number: MX-ABBVIE-4772092

PATIENT
  Sex: Male
  Weight: 85 kg

DRUGS (4)
  1. HUMIRA [Suspect]
     Active Substance: ADALIMUMAB
     Indication: Crohn^s disease
     Dosage: FORM STRENGTH: 40MG
     Route: 058
     Dates: start: 20181001
  2. HUMIRA [Suspect]
     Active Substance: ADALIMUMAB
     Dosage: FORM STRENGTH: 40MG
     Route: 058
  3. MIRTAZAPINE [Concomitant]
     Active Substance: MIRTAZAPINE
     Indication: Depression
     Dosage: FORM STRENGTH: 30 MG?FREQUENCY: DAILY
     Route: 048
     Dates: start: 202305
  4. IMURAN [Concomitant]
     Active Substance: AZATHIOPRINE
     Indication: Product used for unknown indication
     Dosage: ONE AND A HALF TABLETS?FREQUENCY TEXT: DAILY
     Route: 048

REACTIONS (23)
  - Myocardial ischaemia [Unknown]
  - Fall [Recovering/Resolving]
  - Discomfort [Unknown]
  - Hospitalisation [Recovered/Resolved]
  - Depression [Recovering/Resolving]
  - Somnolence [Unknown]
  - Stenosis [Unknown]
  - Cataract [Unknown]
  - Pneumonia aspiration [Unknown]
  - Insomnia [Unknown]
  - COVID-19 [Unknown]
  - Aggression [Unknown]
  - Face injury [Unknown]
  - Weight increased [Not Recovered/Not Resolved]
  - Accident [Unknown]
  - Thyroidectomy [Unknown]
  - Overdose [Recovering/Resolving]
  - Muscular weakness [Recovering/Resolving]
  - Arterial occlusive disease [Unknown]
  - Aspergillus infection [Unknown]
  - Escherichia infection [Unknown]
  - Klebsiella infection [Unknown]
  - Hyperphagia [Not Recovered/Not Resolved]

NARRATIVE: CASE EVENT DATE: 20220101
